FAERS Safety Report 5162498-3 (Version None)
Quarter: 2006Q4

REPORT INFORMATION
  Report Type: 
  Country: None (occurrence: None)
  Receive Date: 20061128
  Receipt Date: 20061128
  Transmission Date: 20070319
  Serious: Yes (Life-Threatening, Hospitalization)
  Sender: FDA-Public Use
  Company Number: None

PATIENT
  Age: 31 Year
  Sex: Male
  Weight: 59.8 kg

DRUGS (8)
  1. EMTRICITABINE [Suspect]
     Indication: HIV INFECTION
     Dosage: 200 MG Q HS PO
     Route: 048
     Dates: start: 20060517, end: 20061022
  2. TENOFOVIR DISOPROXIL FUMARATE [Suspect]
     Indication: HIV INFECTION
     Dosage: 300 MG Q HS PO
     Route: 048
     Dates: start: 20060517, end: 20061027
  3. EFAVIRENZ [Suspect]
     Indication: HIV INFECTION
     Dosage: 600 MG Q HS PO
     Route: 048
     Dates: start: 20060517, end: 20061027
  4. COTRIM D.S. [Concomitant]
  5. ISONIAZID [Concomitant]
  6. RIFAMPICIN [Concomitant]
  7. PYRAZINAMIDE [Concomitant]
  8. ETHAMBUTOL HYDROCHLORIDE [Concomitant]

REACTIONS (22)
  - ABDOMINAL DISCOMFORT [None]
  - ACID FAST BACILLI INFECTION [None]
  - ALANINE AMINOTRANSFERASE INCREASED [None]
  - ANOREXIA [None]
  - ASPARTATE AMINOTRANSFERASE INCREASED [None]
  - ASTHENIA [None]
  - BLOOD ALKALINE PHOSPHATASE INCREASED [None]
  - CHEST PAIN [None]
  - CONFUSIONAL STATE [None]
  - DIARRHOEA [None]
  - ERUCTATION [None]
  - HAEMOGLOBIN DECREASED [None]
  - HEPATIC ENCEPHALOPATHY [None]
  - HEPATOMEGALY [None]
  - JAUNDICE [None]
  - MALAISE [None]
  - NAUSEA [None]
  - PNEUMONIA [None]
  - PRODUCTIVE COUGH [None]
  - PYREXIA [None]
  - RESTLESSNESS [None]
  - SPUTUM CULTURE POSITIVE [None]
